FAERS Safety Report 20377768 (Version 1)
Quarter: 2022Q1

REPORT INFORMATION
  Report Type: Report from Study
  Country: US (occurrence: None)
  Receive Date: 20220126
  Receipt Date: 20220126
  Transmission Date: 20220424
  Serious: Yes (Other)
  Sender: FDA-Public Use
  Company Number: US-ROCHE-3003473

PATIENT
  Age: 63 Year
  Sex: Female
  Weight: 61.9 kg

DRUGS (3)
  1. BEVACIZUMAB [Suspect]
     Active Substance: BEVACIZUMAB
     Indication: Ovarian cancer
     Dosage: OVER 90 MINUTES ON DAYS 1 AND 15?LAST ADMINISTERED DATE: 08/NOV/2021
     Route: 042
     Dates: start: 20210830
  2. ATEZOLIZUMAB [Suspect]
     Active Substance: ATEZOLIZUMAB
     Indication: Ovarian cancer
     Dosage: OVER 1 HOUR ON DAYS 1 AND 15?LAST ADMINISTERED DATE: 08/NOV/2021
     Route: 041
     Dates: start: 20210830
  3. DOXORUBICIN HYDROCHLORIDE [Suspect]
     Active Substance: DOXORUBICIN HYDROCHLORIDE
     Indication: Ovarian cancer
     Dosage: OVER 1 HOUR ON DAY 1?LAST DOSE ADMINISTERED DATE: 25/OCT/2021
     Route: 042
     Dates: start: 20210830

REACTIONS (1)
  - Palmar-plantar erythrodysaesthesia syndrome [Unknown]

NARRATIVE: CASE EVENT DATE: 20211108
